FAERS Safety Report 24447666 (Version 1)
Quarter: 2024Q4

REPORT INFORMATION
  Report Type: Spontaneous
  Country: US (occurrence: US)
  Receive Date: 20241016
  Receipt Date: 20241016
  Transmission Date: 20250114
  Serious: No
  Sender: SANOFI AVENTIS
  Company Number: US-SA-2024SA296008

PATIENT
  Age: 72 Year
  Sex: Female

DRUGS (2)
  1. KEVZARA [Suspect]
     Active Substance: SARILUMAB
     Dosage: UNK
  2. ACTHAR [Suspect]
     Active Substance: CORTICOTROPIN
     Dosage: UNK

REACTIONS (4)
  - Pain [Unknown]
  - Headache [Unknown]
  - Gait inability [Unknown]
  - Anxiety [Unknown]
